FAERS Safety Report 6099983-6 (Version None)
Quarter: 2009Q1

REPORT INFORMATION
  Report Type: 
  Country: None (occurrence: None)
  Receive Date: 20090303
  Receipt Date: 20090226
  Transmission Date: 20090719
  Serious: Yes (Death, Congenital Anomaly)
  Sender: FDA-Public Use
  Company Number: A0713585A

PATIENT

DRUGS (5)
  1. COMBIVIR [Suspect]
     Indication: HIV INFECTION
     Dates: start: 20040101
  2. VALCYTE [Suspect]
     Indication: HIV INFECTION
     Dates: start: 20040101, end: 20060925
  3. SUSTIVA [Suspect]
     Indication: HIV INFECTION
     Dates: start: 20050101, end: 20060925
  4. TRIMETHOPRIM + SULFAMETHOXAZOLE [Suspect]
     Indication: DRUG USE FOR UNKNOWN INDICATION
     Dates: end: 20060925
  5. NORVIR [Concomitant]
     Indication: HIV INFECTION
     Dates: start: 20060925

REACTIONS (4)
  - CONGENITAL ANOMALY [None]
  - CONGENITAL FOOT MALFORMATION [None]
  - DRUG EXPOSURE DURING PREGNANCY [None]
  - NEURAL TUBE DEFECT [None]
